FAERS Safety Report 7843396-0 (Version None)
Quarter: 2011Q4

REPORT INFORMATION
  Report Type: 
  Country: None (occurrence: None)
  Receive Date: 20111025
  Receipt Date: 20111004
  Transmission Date: 20120403
  Serious: No
  Sender: FDA-Public Use
  Company Number: US-ROXANE LABORATORIES, INC.-2011-RO-01407RO

PATIENT
  Age: 31 Year
  Sex: Female

DRUGS (2)
  1. ULTRAM [Concomitant]
     Indication: FIBROMYALGIA
  2. FLUTICASONE PROPIONATE [Suspect]
     Indication: SEASONAL ALLERGY
     Route: 055
     Dates: start: 20110901, end: 20110901

REACTIONS (2)
  - THROAT IRRITATION [None]
  - GLOSSITIS [None]
